FAERS Safety Report 8723865 (Version 3)
Quarter: 2012Q4

REPORT INFORMATION
  Report Type: 
  Country: US (occurrence: US)
  Receive Date: 20120815
  Receipt Date: 20120928
  Transmission Date: 20130627
  Serious: No
  Sender: FDA-Public Use
  Company Number: US-PFIZER INC-2012194753

PATIENT
  Age: 11 Year
  Sex: Female
  Weight: 54.4 kg

DRUGS (16)
  1. GENOTROPIN [Suspect]
     Indication: GROWTH HORMONE DEFICIENCY
     Dosage: 2.2 mg, Nightly
     Route: 058
     Dates: start: 20120629
  2. GENOTROPIN [Suspect]
     Indication: HYPOTHALAMO-PITUITARY DISORDER
     Dosage: 2.2 ml, daily
     Dates: start: 20120714
  3. GENOTROPIN [Suspect]
     Indication: BODY HEIGHT BELOW NORMAL
  4. GENOTROPIN [Suspect]
     Indication: OVERWEIGHT
  5. PULMOZYME [Concomitant]
     Indication: ASTHMA
     Dosage: 2.5 mg, Twice daily in the yellow zone
     Route: 055
     Dates: start: 20111111
  6. ADVAIR [Concomitant]
     Indication: ASTHMA
     Dosage: UNK, 2 puffs 2x/day
     Route: 055
     Dates: start: 20111111
  7. FLOVENT [Concomitant]
     Indication: ASTHMA
     Dosage: UNK, 2 puffs 2x/day
     Dates: start: 20111111
  8. LORATADINE [Concomitant]
     Indication: ASTHMA
     Dosage: 10 mg, Unk
     Route: 048
  9. SINGULAIR [Concomitant]
     Indication: ASTHMA
     Dosage: 5 mg, 1 Tab by mouth Nightly
     Route: 048
     Dates: start: 20111111
  10. AZITHROMYCIN [Concomitant]
     Indication: ASTHMA
     Dosage: 250 mg, 2x/week (Wednesday and Friday)
     Route: 048
  11. AZITHROMYCIN [Concomitant]
     Dosage: on Monday, Wednesday, Friday
     Route: 048
  12. VENTOLIN [Concomitant]
     Indication: ASTHMA
     Dosage: 2 Puffs by inhalation Every 4 hours as needed
     Dates: start: 20120801
  13. SODIUM CHLORIDE [Concomitant]
     Indication: ASTHMA
     Dosage: 03 ml, 2x/day
     Route: 055
     Dates: start: 20120328
  14. CLARITIN [Concomitant]
     Indication: HYPERSENSITIVITY
     Dosage: 10 mg, 1x/day
     Route: 048
     Dates: start: 20110513
  15. CLARITIN [Concomitant]
     Indication: ASTHMA
  16. COMBIVENT [Concomitant]
     Indication: ASTHMA
     Dosage: 2 Puffs by inhalation Once for 1 dose
     Route: 055
     Dates: start: 20111111

REACTIONS (1)
  - Headache [Not Recovered/Not Resolved]
